FAERS Safety Report 21780845 (Version 2)
Quarter: 2023Q1

REPORT INFORMATION
  Report Type: Report from Study
  Country: CA (occurrence: CA)
  Receive Date: 20221227
  Receipt Date: 20230307
  Transmission Date: 20230418
  Serious: Yes (Other)
  Sender: FDA-Public Use
  Company Number: CA-002147023-NVSC2021CA274065

PATIENT
  Age: 67 Year
  Sex: Female

DRUGS (7)
  1. HYRIMOZ [Suspect]
     Active Substance: ADALIMUMAB-ADAZ
     Indication: Crohn^s disease
     Dosage: 160 MG
     Route: 058
     Dates: start: 20211028
  2. HYRIMOZ [Suspect]
     Active Substance: ADALIMUMAB-ADAZ
     Dosage: 40 MG
     Route: 058
  3. MESALAMINE [Concomitant]
     Active Substance: MESALAMINE
     Indication: Product used for unknown indication
     Dosage: UNK UNK, BID
     Route: 048
  4. PURINETHOL [Concomitant]
     Active Substance: MERCAPTOPURINE
     Indication: Product used for unknown indication
     Dosage: UNK (FAILED THERAPY AT THE TIME)
     Route: 065
     Dates: start: 2012
  5. BISOPROLOL [Concomitant]
     Active Substance: BISOPROLOL
     Indication: Product used for unknown indication
     Dosage: 0.5 DOSAGE FORM, QD (1/2 CO/DIE)
     Route: 048
  6. ASPIRIN [Concomitant]
     Active Substance: ASPIRIN
     Indication: Product used for unknown indication
     Dosage: UNK, QD
     Route: 048
  7. IRBESARTAN AND HYDROCHLOROTHIAZIDE [Concomitant]
     Active Substance: HYDROCHLOROTHIAZIDE\IRBESARTAN
     Indication: Product used for unknown indication
     Dosage: 1 DOSAGE FORM, QD (1 CO DIE)
     Route: 065

REACTIONS (10)
  - Rectal haemorrhage [Recovered/Resolved]
  - Haematochezia [Unknown]
  - Abnormal faeces [Unknown]
  - Constipation [Unknown]
  - Fatigue [Not Recovered/Not Resolved]
  - Mucous stools [Unknown]
  - Hypersomnia [Unknown]
  - Face injury [Unknown]
  - Anal fissure [Unknown]
  - Rash [Unknown]
